FAERS Safety Report 4356781-9 (Version None)
Quarter: 2004Q2

REPORT INFORMATION
  Report Type: 
  Country: None (occurrence: None)
  Receive Date: 20040507
  Receipt Date: 20040428
  Transmission Date: 20050107
  Serious: Yes (Hospitalization)
  Sender: FDA-Public Use
  Company Number: 2004210387FR

PATIENT
  Age: 34 Year
  Sex: Female
  Weight: 50 kg

DRUGS (16)
  1. CLINDAMYCIN HCL [Suspect]
     Indication: STAPHYLOCOCCAL INFECTION
     Dosage: 400 MG, TID, ORAL
     Route: 048
     Dates: start: 20040301, end: 20040318
  2. TRACLEER [Suspect]
     Indication: EXTREMITY NECROSIS
     Dosage: 62.5 MG, BID, ORAL
     Route: 048
     Dates: start: 20040306, end: 20040318
  3. OMEPRAZOLE [Suspect]
     Dosage: 20 MG, QD, ORAL
     Route: 048
     Dates: start: 20040205, end: 20040318
  4. PAROXETINE HCL [Suspect]
     Dosage: 20 MG, QD, ORAL
     Route: 048
     Dates: start: 20040205, end: 20040318
  5. FELODIPINE [Suspect]
     Indication: EXTREMITY NECROSIS
     Dosage: 5 MG, QD, ORAL
     Route: 048
     Dates: start: 20040306, end: 20040318
  6. CIPROFLOXACIN [Suspect]
     Indication: STAPHYLOCOCCAL INFECTION
     Dates: start: 20040301, end: 20040318
  7. MORPHINE SULFATE [Suspect]
     Dates: start: 20040210, end: 20040318
  8. ACTISKENAN (DEXTROMETHORPHAN/MORPHINE) [Suspect]
     Dates: start: 20030208, end: 20040318
  9. ASPIRIN [Suspect]
     Dates: start: 20040309, end: 20040318
  10. STILNOX (ZOLPIDEM) [Suspect]
     Dates: start: 20040302, end: 20040318
  11. PYOSTACINE (PRISTINAMYCIN) [Suspect]
     Indication: STAPHYLOCOCCAL INFECTION
     Dates: end: 20040318
  12. ILOMEDINE (ILOPROST) [Concomitant]
  13. TRANXENE [Concomitant]
  14. NICORETTE (NICOTINE RESIN) [Concomitant]
  15. MICROVAL [Concomitant]
  16. FORLAX (MACROGOL) [Concomitant]

REACTIONS (16)
  - ANAEMIA [None]
  - ASTHENIA [None]
  - DYSPNOEA [None]
  - FACE OEDEMA [None]
  - HYPOTENSION [None]
  - HYPOXIA [None]
  - LEUKOCYTOSIS [None]
  - OEDEMA [None]
  - OEDEMA PERIPHERAL [None]
  - PLEURAL EFFUSION [None]
  - POLYSEROSITIS [None]
  - PYREXIA [None]
  - STAPHYLOCOCCAL INFECTION [None]
  - SUPERINFECTION [None]
  - SYSTEMIC INFLAMMATORY RESPONSE SYNDROME [None]
  - WEIGHT INCREASED [None]
